FAERS Safety Report 5195008-5 (Version None)
Quarter: 2006Q4

REPORT INFORMATION
  Report Type: 
  Country: None (occurrence: None)
  Receive Date: 20061229
  Receipt Date: 20061215
  Transmission Date: 20070319
  Serious: Yes (Hospitalization)
  Sender: FDA-Public Use
  Company Number: IT-MERCK-0612ITA00028

PATIENT
  Age: 72 Year
  Sex: Male

DRUGS (7)
  1. ZOCOR [Suspect]
     Indication: HYPERCHOLESTEROLAEMIA
     Route: 048
  2. ZOCOR [Suspect]
     Route: 048
     Dates: start: 20060401, end: 20060101
  3. ZOCOR [Suspect]
     Indication: ISCHAEMIC STROKE
     Route: 048
  4. ZOCOR [Suspect]
     Route: 048
     Dates: start: 20060401, end: 20060101
  5. CYCLOSPORINE [Suspect]
     Indication: PSORIASIS
     Route: 048
  6. [THERAPY UNSPECIFIED] [Concomitant]
     Indication: HYPERTENSION
     Route: 065
  7. DIURETIC (UNSPECIFIED) [Concomitant]
     Indication: HYPERTENSION
     Route: 065

REACTIONS (10)
  - ASTHENIA [None]
  - DIALYSIS [None]
  - DRUG INTERACTION [None]
  - HAEMOLYSIS [None]
  - ISCHAEMIC STROKE [None]
  - LEUKOCYTOSIS [None]
  - MYOPATHY TOXIC [None]
  - RENAL FAILURE ACUTE [None]
  - RENAL TUBULAR NECROSIS [None]
  - RHABDOMYOLYSIS [None]
